FAERS Safety Report 25990994 (Version 3)
Quarter: 2025Q4

REPORT INFORMATION
  Report Type: Spontaneous
  Country: TR (occurrence: TR)
  Receive Date: 20251103
  Receipt Date: 20251124
  Transmission Date: 20260119
  Serious: Yes (Death, Life-Threatening, Other)
  Sender: PFIZER
  Company Number: TR-PFIZER INC-PV202500128061

PATIENT
  Age: 64 Year
  Sex: Female
  Weight: 58 kg

DRUGS (1)
  1. METHYLPREDNISOLONE ACETATE [Suspect]
     Active Substance: METHYLPREDNISOLONE ACETATE
     Indication: Cytotoxic lesions of corpus callosum
     Dosage: 1 MG/KG

REACTIONS (4)
  - Respiratory distress [Fatal]
  - Pneumonia [Fatal]
  - Septic shock [Fatal]
  - Drug ineffective [Fatal]
